FAERS Safety Report 10811106 (Version 1)
Quarter: 2015Q1

REPORT INFORMATION
  Report Type: Spontaneous
  Country: US (occurrence: None)
  Receive Date: 20150212
  Receipt Date: 20150212
  Transmission Date: 20150721
  Serious: No
  Sender: FDA-Public Use
  Company Number: None

PATIENT
  Age: 68 Year
  Sex: Female
  Weight: 80.74 kg

DRUGS (9)
  1. KEFLEX [Concomitant]
     Active Substance: CEPHALEXIN
  2. PREMARIN [Concomitant]
     Active Substance: ESTROGENS, CONJUGATED
  3. CALCIUM WITH D + MINERALS [Concomitant]
  4. VITAMIN D [Concomitant]
     Active Substance: CHOLECALCIFEROL
  5. VITAMIN C [Concomitant]
     Active Substance: ASCORBIC ACID
  6. CHLORHEXIDIN-ISOPROPYL ALCOHOL - SURGICAL PREP [Suspect]
     Active Substance: CHLORHEXIDINE GLUCONATE\ISOPROPYL ALCOHOL
     Indication: PROPHYLAXIS
     Dates: start: 20150108, end: 20150108
  7. ALLOPURINOL. [Concomitant]
     Active Substance: ALLOPURINOL
  8. OXYBUTYNIN [Concomitant]
     Active Substance: OXYBUTYNIN
  9. L-LYSINE [Concomitant]
     Active Substance: LYSINE

REACTIONS (5)
  - Rash erythematous [None]
  - Pruritus [None]
  - Discomfort [None]
  - Rash pruritic [None]
  - Skin texture abnormal [None]

NARRATIVE: CASE EVENT DATE: 20150108
